FAERS Safety Report 26194934 (Version 1)
Quarter: 2025Q4

REPORT INFORMATION
  Report Type: Spontaneous
  Country: US (occurrence: US)
  Receive Date: 20251224
  Receipt Date: 20251224
  Transmission Date: 20260118
  Serious: No
  Sender: ABBVIE
  Company Number: US-ABBVIE-6605596

PATIENT

DRUGS (4)
  1. QULIPTA [Suspect]
     Active Substance: ATOGEPANT
     Indication: Pain prophylaxis
     Route: 048
     Dates: start: 202511
  2. QULIPTA [Suspect]
     Active Substance: ATOGEPANT
     Indication: Pain prophylaxis
     Route: 048
     Dates: start: 20251201, end: 20251213
  3. Nafcon-a [Concomitant]
     Indication: Product used for unknown indication
     Route: 047
  4. TYLENOL [Concomitant]
     Active Substance: ACETAMINOPHEN
     Indication: Product used for unknown indication

REACTIONS (6)
  - Eye pain [Not Recovered/Not Resolved]
  - Wrong technique in product usage process [Unknown]
  - Impaired driving ability [Unknown]
  - Dry eye [Unknown]
  - Photophobia [Unknown]
  - Conjunctivitis [Unknown]

NARRATIVE: CASE EVENT DATE: 20250101
